FAERS Safety Report 8770546 (Version 2)
Quarter: 2013Q4

REPORT INFORMATION
  Report Type: Spontaneous
  Country: US (occurrence: US)
  Receive Date: 20120906
  Receipt Date: 20131031
  Transmission Date: 20140711
  Serious: No
  Sender: FDA-Public Use
  Company Number: US-009507513-2012SP035821

PATIENT
  Age: 5 Year
  Sex: Female
  Weight: 22.68 kg

DRUGS (2)
  1. CLARITIN CHEWABLE TABLETS [Suspect]
     Indication: SEASONAL ALLERGY
     Dosage: 5 MG, BID
     Route: 048
  2. TYLENOL [Concomitant]
     Indication: OROPHARYNGEAL PAIN
     Dosage: UNK UNK, UNKNOWN

REACTIONS (1)
  - Accidental overdose [Not Recovered/Not Resolved]
